FAERS Safety Report 7808786-0 (Version None)
Quarter: 2011Q4

REPORT INFORMATION
  Report Type: 
  Country: None (occurrence: None)
  Receive Date: 20111012
  Receipt Date: 20110928
  Transmission Date: 20120403
  Serious: Yes (Hospitalization)
  Sender: FDA-Public Use
  Company Number: PHEH2011US05347

PATIENT
  Sex: Female

DRUGS (6)
  1. ACCUPRIL [Suspect]
     Dosage: 20 MG, DAILY
  2. DIOVAN [Suspect]
     Indication: HYPERTENSION
     Dosage: 1 DF (80 MG), DAILY
  3. PLAVIX [Concomitant]
     Dosage: UNK
  4. DIOVAN [Suspect]
     Dosage: 1 DF (160MG), DAILY
  5. MULTI-VITAMINS [Concomitant]
     Dosage: UNK
  6. CRESTOR [Concomitant]
     Dosage: 5 MG, UNK

REACTIONS (4)
  - MYOCARDIAL INFARCTION [None]
  - CAROTID ARTERY ANEURYSM [None]
  - CAROTID ARTERY STENOSIS [None]
  - BLOOD PRESSURE FLUCTUATION [None]
